FAERS Safety Report 21207282 (Version 1)
Quarter: 2022Q3

REPORT INFORMATION
  Report Type: Spontaneous
  Country: GB (occurrence: GB)
  Receive Date: 20220812
  Receipt Date: 20220812
  Transmission Date: 20221027
  Serious: Yes (Other)
  Sender: FDA-Public Use
  Company Number: None

PATIENT
  Age: 78 Year
  Sex: Male
  Weight: 57 kg

DRUGS (28)
  1. METFORMIN [Suspect]
     Active Substance: METFORMIN HYDROCHLORIDE
     Indication: Product used for unknown indication
     Dosage: 500 MILLIGRAM DAILY; 500MG, FREQUENCY : 1 IN 1DAYS,THERAPY END DATE NASK
     Route: 065
     Dates: start: 20210923
  2. AMITRIPTYLINE HYDROCHLORIDE [Concomitant]
     Active Substance: AMITRIPTYLINE HYDROCHLORIDE
     Indication: Product used for unknown indication
     Dosage: 1 DOSAGE FORMS DAILY; AT NIGHT. IF NO SIDE EFFECTS TH...1DF
     Dates: start: 20220711
  3. ASPIRIN [Concomitant]
     Active Substance: ASPIRIN
     Indication: Product used for unknown indication
     Dosage: 1 DOSAGE FORMS DAILY; TO BE TAKEN IN THE MORNING
     Dates: start: 20200602
  4. ATORVASTATIN [Concomitant]
     Active Substance: ATORVASTATIN
     Indication: Product used for unknown indication
     Dosage: 1 DOSAGE FORMS DAILY; 1 DF, QD
     Dates: start: 20220311
  5. BETAMETHASONE VALERATE [Concomitant]
     Active Substance: BETAMETHASONE VALERATE
     Indication: Product used for unknown indication
     Dosage: 2 DOSAGE FORMS DAILY; 1 DF, BD
     Dates: start: 20220701
  6. BRIMONIDINE TARTRATE [Concomitant]
     Active Substance: BRIMONIDINE TARTRATE
     Indication: Product used for unknown indication
     Dosage: 2 DOSAGE FORMS DAILY; INSTILL  TO BOTH EYES, 1 DF, BD
     Dates: start: 20210419
  7. BRINZOLAMIDE [Concomitant]
     Active Substance: BRINZOLAMIDE
     Indication: Product used for unknown indication
     Dosage: 2 DOSAGE FORMS DAILY; INSTILL  TO BOTH EYES, 1 DF, BD
     Dates: start: 20210701
  8. CANDESARTAN [Concomitant]
     Active Substance: CANDESARTAN
     Indication: Product used for unknown indication
     Dosage: 1 DOSAGE FORMS DAILY; 1 DF, QD
     Dates: start: 20200602
  9. CLOPIDOGREL [Concomitant]
     Active Substance: CLOPIDOGREL BISULFATE
     Indication: Product used for unknown indication
     Dosage: 1 DOSAGE FORMS DAILY; - STOP JAN 2023, 1 DF, QD
     Dates: start: 20220118
  10. DAPAGLIFLOZIN [Concomitant]
     Active Substance: DAPAGLIFLOZIN
     Indication: Product used for unknown indication
     Dosage: 1 DOSAGE FORMS DAILY; IN AM, 1 DF, QD
     Dates: start: 20211001
  11. CLOBETASOL [Concomitant]
     Active Substance: CLOBETASOL
     Indication: Product used for unknown indication
     Dosage: APPLY AT NIGHT,DURATION 1DAYS
     Dates: start: 20220701, end: 20220702
  12. DOXAZOSIN [Concomitant]
     Active Substance: DOXAZOSIN MESYLATE
     Indication: Product used for unknown indication
     Dosage: 1 DOSAGE FORMS DAILY; TAKE AT  BEDTIME
     Dates: start: 20210504
  13. FENBID [Concomitant]
     Indication: Product used for unknown indication
     Dosage: 3 DOSAGE FORMS DAILY; 1 DF, TID
     Dates: start: 20220701
  14. FLUPENTIXOL [Concomitant]
     Active Substance: FLUPENTIXOL
     Indication: Product used for unknown indication
     Dosage: 1 DOSAGE FORMS DAILY; OM, 1 DF, QD
     Dates: start: 20220225
  15. GLIMEPIRIDE [Concomitant]
     Active Substance: GLIMEPIRIDE
     Indication: Product used for unknown indication
     Dosage: 1 DOSAGE FORMS DAILY; 1 DF, QD
     Dates: start: 20220708
  16. HYALURONATE SODIUM [Concomitant]
     Active Substance: HYALURONATE SODIUM
     Indication: Product used for unknown indication
     Dosage: USE 4-6 TIMES IN BOTH EYES AS DIRECTED,FREQUENCY TIME 1DAYS
     Dates: start: 20200731
  17. KETOCONAZOLE [Concomitant]
     Active Substance: KETOCONAZOLE
     Indication: Product used for unknown indication
     Dosage: USE AS DIRECTED,DURATION 1DAYS
     Dates: start: 20220701, end: 20220702
  18. LANSOPRAZOLE [Concomitant]
     Active Substance: LANSOPRAZOLE
     Indication: Product used for unknown indication
     Dosage: 1 DOSAGE FORMS DAILY; 1 DF, QD
     Dates: start: 20220311
  19. LATANOPROST [Concomitant]
     Active Substance: LATANOPROST
     Indication: Product used for unknown indication
     Dosage: 1 DOSAGE FORMS DAILY; IN THE EVENING
     Dates: start: 20210701
  20. LINAGLIPTIN [Concomitant]
     Active Substance: LINAGLIPTIN
     Indication: Product used for unknown indication
     Dosage: 1 DOSAGE FORMS DAILY; 1 DF, QD
     Dates: start: 20211018
  21. ISOSORBIDE MONONITRATE [Concomitant]
     Active Substance: ISOSORBIDE MONONITRATE
     Indication: Product used for unknown indication
     Dosage: 60 MILLIGRAM DAILY; EACH MORNING
     Dates: start: 20220118
  22. ALUMINUM HYDROXIDE\MAGNESIUM HYDROXIDE [Concomitant]
     Active Substance: ALUMINUM HYDROXIDE\MAGNESIUM HYDROXIDE
     Indication: Product used for unknown indication
     Dosage: 8 DOSAGE FORMS DAILY; TEASPOONSFUL, 2 DF, 4 TIMES A DAY
     Dates: start: 20220701
  23. NEBIVOLOL [Concomitant]
     Active Substance: NEBIVOLOL
     Indication: Product used for unknown indication
     Dosage: 2.5 MILLIGRAM DAILY; 2.5 MG, QD
     Dates: start: 20200602
  24. NICARDIPINE HYDROCHLORIDE [Concomitant]
     Active Substance: NICARDIPINE HYDROCHLORIDE
     Indication: Product used for unknown indication
     Dosage: 6 DOSAGE FORMS DAILY; 2DF, TID
     Dates: start: 20200602
  25. CALCIUM CARBONATE\SODIUM ALGINATE\SODIUM BICARBONATE [Concomitant]
     Active Substance: CALCIUM CARBONATE\SODIUM ALGINATE\SODIUM BICARBONATE
     Indication: Product used for unknown indication
     Dosage: 40 MILLIMOL DAILY; 2X5ML SPOON, 10MMOL, 4 TIMES A DAY, DURATION 12DAYS
     Dates: start: 20220701, end: 20220713
  26. QUININE [Concomitant]
     Active Substance: QUININE
     Indication: Product used for unknown indication
     Dosage: 1 DOSAGE FORMS DAILY; AT NIGHT
     Dates: start: 20220701
  27. SENNA [Concomitant]
     Active Substance: SENNA LEAF\SENNOSIDES\SENNOSIDES A AND B
     Indication: Product used for unknown indication
     Dosage: 2 DOSAGE FORMS DAILY; AT NIGHT
     Dates: start: 20220701
  28. TRUSOPT [Concomitant]
     Active Substance: DORZOLAMIDE HYDROCHLORIDE
     Indication: Product used for unknown indication
     Dosage: 2 DOSAGE FORMS DAILY; BOTH EYES, 1DF, BD
     Dates: start: 20220712

REACTIONS (1)
  - Arthralgia [Recovered/Resolved]

NARRATIVE: CASE EVENT DATE: 20220722
